FAERS Safety Report 7543946-8 (Version None)
Quarter: 2011Q2

REPORT INFORMATION
  Report Type: 
  Country: None (occurrence: None)
  Receive Date: 20110613
  Receipt Date: 20110601
  Transmission Date: 20111010
  Serious: Yes (Hospitalization)
  Sender: FDA-Public Use
  Company Number: PHHY2011CH12382

PATIENT
  Age: 18 Year
  Sex: Female

DRUGS (23)
  1. FLUDARABINE PHOSPHATE [Suspect]
     Dosage: 50 MG/D
     Route: 042
     Dates: start: 20110112, end: 20110116
  2. ALKERAN [Suspect]
     Dosage: 125 MG/D
     Route: 042
     Dates: start: 20110115, end: 20110116
  3. CIPROFLOXACIN [Concomitant]
     Dosage: 500 MG, BID
     Dates: start: 20110110, end: 20110120
  4. URSO FALK [Concomitant]
     Dosage: 750 MG, QD
  5. LASIX [Concomitant]
     Dosage: 80 MG, QD
     Route: 042
     Dates: start: 20110119, end: 20110121
  6. BACTRIM [Concomitant]
     Dosage: UNK
  7. TEMGESIC [Concomitant]
  8. SANDIMMUNE [Suspect]
     Indication: IMMUNOSUPPRESSION
     Dosage: 150 MG, BID
     Route: 042
     Dates: start: 20110116, end: 20110120
  9. SOLU-MEDROL [Concomitant]
     Indication: IMMUNOSUPPRESSION
     Dosage: 250 MG/D
     Dates: start: 20110111, end: 20110114
  10. BACTRIM [Concomitant]
     Dosage: 320 MG, THREE TIMES PER WEEK
     Dates: start: 20110110
  11. ACETAMINOPHEN [Concomitant]
     Dosage: 1000 MG/D
     Route: 042
     Dates: start: 20110111, end: 20110119
  12. IMPLANON [Suspect]
     Dosage: 68 MG/3 YEARS
  13. TRAMADOL HYDROCHLORIDE [Concomitant]
  14. CELLCEPT [Concomitant]
     Indication: IMMUNOSUPPRESSION
     Dosage: UNK
     Dates: start: 20110210, end: 20110221
  15. VALTREX [Concomitant]
     Dosage: 1000 MG/D
     Dates: start: 20110110, end: 20110120
  16. NEXIUM [Concomitant]
     Dosage: 40 MG/D
     Dates: start: 20110111, end: 20110204
  17. PROGRAF [Suspect]
     Dosage: 0.8 MG, QD
     Route: 042
     Dates: start: 20110122, end: 20110124
  18. THYMOGLOBULIN [Concomitant]
     Dosage: 175 MG
     Route: 042
     Dates: start: 20110112, end: 20110116
  19. SOLU-MEDROL [Concomitant]
     Dosage: UNK
     Dates: start: 20110221
  20. FLAGYL [Concomitant]
     Dosage: 1500 MG/D
     Dates: start: 20110110, end: 20110204
  21. DIFLUCAN [Concomitant]
     Dosage: 200 MG/D
     Dates: start: 20110112, end: 20110129
  22. CALCIMAGON-D3 [Concomitant]
     Dosage: 1000 MG, QD
     Dates: start: 20110119, end: 20110204
  23. ONDANSETRON [Concomitant]
     Dosage: 8 MG
     Dates: start: 20110119, end: 20110204

REACTIONS (6)
  - BONE PAIN [None]
  - ANURIA [None]
  - THROMBOTIC MICROANGIOPATHY [None]
  - RENAL FAILURE ACUTE [None]
  - OLIGURIA [None]
  - ISCHAEMIA [None]
